FAERS Safety Report 15480098 (Version 10)
Quarter: 2022Q2

REPORT INFORMATION
  Report Type: Report from Study
  Country: DE (occurrence: DE)
  Receive Date: 20181009
  Receipt Date: 20220518
  Transmission Date: 20220721
  Serious: Yes (Hospitalization)
  Sender: FDA-Public Use
  Company Number: PHHY2018DE061272

PATIENT
  Age: 55 Year
  Sex: Male
  Weight: 88 kg

DRUGS (6)
  1. COSENTYX [Suspect]
     Active Substance: SECUKINUMAB
     Indication: Ankylosing spondylitis
     Dosage: 150 MG
     Route: 058
     Dates: start: 20160518, end: 20160616
  2. COSENTYX [Suspect]
     Active Substance: SECUKINUMAB
     Dosage: 150 MG
     Route: 065
     Dates: start: 20160617, end: 20171130
  3. COSENTYX [Suspect]
     Active Substance: SECUKINUMAB
     Dosage: 150 MG, QMO (EVERY 4 WEEKS)
     Route: 058
     Dates: end: 20171231
  4. COSENTYX [Suspect]
     Active Substance: SECUKINUMAB
     Dosage: 150 MG, QMO (EVERY 4 WEEKS)
     Route: 058
     Dates: end: 20180131
  5. COSENTYX [Suspect]
     Active Substance: SECUKINUMAB
     Dosage: 150 MG
     Route: 065
     Dates: start: 20180228, end: 20210729
  6. COSENTYX [Suspect]
     Active Substance: SECUKINUMAB
     Dosage: 150 MG
     Route: 065
     Dates: start: 20210830

REACTIONS (16)
  - Sinus polyp [Recovered/Resolved]
  - Sinusitis [Recovered/Resolved]
  - Blepharitis [Recovered/Resolved]
  - Viral infection [Recovered/Resolved]
  - COVID-19 [Recovered/Resolved]
  - Ageusia [Unknown]
  - Pyrexia [Unknown]
  - Fatigue [Unknown]
  - Nasal polyps [Recovered/Resolved]
  - Contusion [Recovered/Resolved]
  - Muscle strain [Recovered/Resolved]
  - Rhinorrhoea [Recovered/Resolved]
  - Nasopharyngitis [Recovered/Resolved]
  - Rhinitis [Not Recovered/Not Resolved]
  - Pulpitis dental [Recovered/Resolved]
  - Neck pain [Recovered/Resolved]

NARRATIVE: CASE EVENT DATE: 20171201
